FAERS Safety Report 11378768 (Version 1)
Quarter: 2015Q3

REPORT INFORMATION
  Report Type: Spontaneous
  Country: US (occurrence: US)
  Receive Date: 20150811
  Receipt Date: 20150811
  Transmission Date: 20151125
  Serious: No
  Sender: FDA-Public Use
  Company Number: US-ELI_LILLY_AND_COMPANY-US200905003813

PATIENT
  Age: 80 Year
  Sex: Female

DRUGS (6)
  1. HUMULIN N [Suspect]
     Active Substance: INSULIN HUMAN
     Dosage: 10 U, DAILY (1/D)
  2. ARICEPT [Concomitant]
     Active Substance: DONEPEZIL HYDROCHLORIDE
  3. LEVOTHYROXINE. [Concomitant]
     Active Substance: LEVOTHYROXINE
  4. HUMULIN N [Suspect]
     Active Substance: INSULIN HUMAN
     Dosage: 10 U, DAILY (1/D)
  5. LORAZEPAM. [Concomitant]
     Active Substance: LORAZEPAM
  6. METFORMIN [Concomitant]
     Active Substance: METFORMIN HYDROCHLORIDE

REACTIONS (4)
  - Visual acuity reduced [Not Recovered/Not Resolved]
  - Weight decreased [Recovered/Resolved]
  - Medication error [Unknown]
  - Blood glucose fluctuation [Not Recovered/Not Resolved]

NARRATIVE: CASE EVENT DATE: 2006
